FAERS Safety Report 5828455-6 (Version None)
Quarter: 2008Q3

REPORT INFORMATION
  Report Type: 
  Country: None (occurrence: None)
  Receive Date: 20080729
  Receipt Date: 20080714
  Transmission Date: 20090109
  Serious: Yes (Hospitalization)
  Sender: FDA-Public Use
  Company Number: 2008AL008691

PATIENT
  Age: 19 Year
  Sex: Male

DRUGS (1)
  1. FEVERALL [Suspect]
     Dosage: X1; PO
     Route: 048

REACTIONS (6)
  - ACUTE HEPATIC FAILURE [None]
  - CONJUNCTIVAL HAEMORRHAGE [None]
  - HEPATIC ENCEPHALOPATHY [None]
  - OVERDOSE [None]
  - PURPURA [None]
  - THROMBOCYTOPENIA [None]
